FAERS Safety Report 9287110 (Version 2)
Quarter: 2013Q2

REPORT INFORMATION
  Report Type: Spontaneous
  Country: US (occurrence: US)
  Receive Date: 20130513
  Receipt Date: 20130624
  Transmission Date: 20140414
  Serious: No
  Sender: FDA-Public Use
  Company Number: US-PFIZER INC-2013146878

PATIENT
  Age: 79 Year
  Sex: Female
  Weight: 65.76 kg

DRUGS (6)
  1. XANAX XR [Suspect]
     Indication: INSOMNIA
     Dosage: 1 MG DAILY
     Dates: start: 201304
  2. XANAX XR [Suspect]
     Indication: ANXIETY
  3. ALPRAZOLAM [Suspect]
     Indication: INSOMNIA
     Dosage: 1 MG DAILY
     Dates: start: 201303
  4. ALPRAZOLAM [Suspect]
     Indication: ANXIETY
  5. XANAX [Suspect]
     Dosage: UNK
  6. PANTOPRAZOLE [Concomitant]
     Indication: DYSPEPSIA
     Dosage: 40 MG DAILY

REACTIONS (6)
  - Drug ineffective [Unknown]
  - Weight increased [Unknown]
  - Off label use [Unknown]
  - Therapeutic response unexpected [Unknown]
  - Dyspepsia [Unknown]
  - Therapeutic response unexpected [Unknown]
